FAERS Safety Report 9048306 (Version 2)
Quarter: 2013Q1

REPORT INFORMATION
  Report Type: Spontaneous
  Country: US (occurrence: US)
  Receive Date: 20130204
  Receipt Date: 20130305
  Transmission Date: 20140127
  Serious: No
  Sender: FDA-Public Use
  Company Number: US-AMGEN-USASP2013001804

PATIENT
  Age: 63 Year
  Sex: Female
  Weight: 83.45 kg

DRUGS (8)
  1. ENBREL [Suspect]
     Indication: PSORIASIS
     Dosage: 50 MG, 2 TIMES/WK
     Route: 058
     Dates: start: 20121212
  2. ABILIFY [Concomitant]
     Dosage: 10 MG, QD
     Route: 048
  3. ZOLOFT [Concomitant]
     Dosage: 100 MG, QD
     Route: 048
  4. LANTUS [Concomitant]
     Dosage: UNK
     Route: 058
  5. NOVOLOG [Concomitant]
     Dosage: UNK
     Route: 058
  6. SYNTHROID [Concomitant]
     Dosage: 150 MG, QD
     Route: 048
  7. NEXIUM                             /01479302/ [Concomitant]
     Dosage: 20 MG, BID
     Route: 048
  8. SIMVASTATIN [Concomitant]
     Dosage: 40 MG, QD
     Route: 048

REACTIONS (4)
  - Pain in extremity [Recovered/Resolved]
  - Fatigue [Recovered/Resolved]
  - Sleep disorder [Not Recovered/Not Resolved]
  - Psoriasis [Not Recovered/Not Resolved]
